FAERS Safety Report 17414340 (Version 3)
Quarter: 2020Q2

REPORT INFORMATION
  Report Type: Spontaneous
  Country: US (occurrence: US)
  Receive Date: 20200213
  Receipt Date: 20200430
  Transmission Date: 20200713
  Serious: No
  Sender: FDA-Public Use
  Company Number: US-VERTEX PHARMACEUTICALS-2020-002415

PATIENT
  Sex: Male
  Weight: 54 kg

DRUGS (2)
  1. PULMOZYME [Concomitant]
     Active Substance: DORNASE ALFA
     Dosage: UNK
  2. TRIKAFTA [Suspect]
     Active Substance: ELEXACAFTOR\IVACAFTOR\TEZACAFTOR
     Indication: CYSTIC FIBROSIS
     Dosage: TRADITIONAL DOSE
     Route: 048

REACTIONS (4)
  - Lacrimation increased [Unknown]
  - Paranasal sinus discomfort [Unknown]
  - Headache [Unknown]
  - Eye pruritus [Unknown]
